FAERS Safety Report 23869689 (Version 1)
Quarter: 2024Q2

REPORT INFORMATION
  Report Type: Spontaneous
  Country: US (occurrence: US)
  Receive Date: 20240517
  Receipt Date: 20240517
  Transmission Date: 20240716
  Serious: No
  Sender: FDA-Public Use
  Company Number: US-BAUSCH-BL-2024-007477

PATIENT
  Age: 47 Year
  Sex: Female

DRUGS (2)
  1. RETIN-A MICRO [Suspect]
     Active Substance: TRETINOIN
     Indication: Therapeutic skin care topical
     Dosage: 50 G
     Route: 061
     Dates: start: 202402, end: 202403
  2. RETIN-A MICRO [Suspect]
     Active Substance: TRETINOIN
     Indication: Product use in unapproved indication
     Dosage: ONLY ONCE A WEEK
     Route: 061
     Dates: start: 202404

REACTIONS (5)
  - Application site irritation [Unknown]
  - Application site erythema [Unknown]
  - Product physical consistency issue [Unknown]
  - Poor quality product administered [Unknown]
  - Product use in unapproved indication [Unknown]

NARRATIVE: CASE EVENT DATE: 20240101
